FAERS Safety Report 6879430-4 (Version None)
Quarter: 2010Q3

REPORT INFORMATION
  Report Type: 
  Country: None (occurrence: None)
  Receive Date: 20100728
  Receipt Date: 20100722
  Transmission Date: 20110219
  Serious: Yes (Life-Threatening, Hospitalization, Disabling)
  Sender: FDA-Public Use
  Company Number: PHHY2010DE48785

PATIENT
  Sex: Female

DRUGS (13)
  1. ACLASTA/ZOLEDRONATE T29581+A++OS [Suspect]
     Dosage: 5 MG, ONCE YEARLY
     Route: 042
     Dates: start: 20100121
  2. CORTISONE [Concomitant]
     Indication: BREAST CANCER
     Dosage: 5 MG
     Dates: start: 20050101
  3. METOPROLOL SUCCINATE [Concomitant]
  4. SIMVAHEXAL [Concomitant]
  5. FEMARA [Concomitant]
  6. DIGIMERCK [Concomitant]
  7. LISIHEXAL [Concomitant]
  8. NITRENDIPIN [Concomitant]
  9. PANTOZOL [Concomitant]
  10. HEPARIN [Concomitant]
     Dosage: 2 X 7500 IE
  11. METHOTREXATE [Concomitant]
  12. FOLSAN [Concomitant]
  13. FORTECORTIN [Concomitant]
     Dosage: 8 MG

REACTIONS (10)
  - ABDOMINAL PAIN [None]
  - APHASIA [None]
  - ATRIAL FIBRILLATION [None]
  - CEREBROVASCULAR ACCIDENT [None]
  - HEMIPARESIS [None]
  - HYPERTENSION [None]
  - LEFT ATRIAL DILATATION [None]
  - METASTASES TO CENTRAL NERVOUS SYSTEM [None]
  - PARALYSIS [None]
  - URINARY TRACT INFECTION [None]
